FAERS Safety Report 5482816-6 (Version None)
Quarter: 2007Q4

REPORT INFORMATION
  Report Type: 
  Country: None (occurrence: None)
  Receive Date: 20071011
  Receipt Date: 20070928
  Transmission Date: 20080405
  Serious: Yes (Death, Other)
  Sender: FDA-Public Use
  Company Number: FR-PFIZER INC-2007043655

PATIENT
  Sex: Female
  Weight: 84 kg

DRUGS (6)
  1. LYRICA [Suspect]
     Indication: EPILEPSY
     Route: 048
  2. LYRICA [Suspect]
     Indication: PARTIAL SEIZURES
  3. TIAGABINE HYDROCHLORIDE [Concomitant]
     Dates: start: 20060101, end: 20060101
  4. OXCARBAZEPINE [Concomitant]
  5. VALPROIC ACID [Concomitant]
  6. LORAZEPAM [Concomitant]

REACTIONS (3)
  - DEATH [None]
  - OVERDOSE [None]
  - WEIGHT INCREASED [None]
